FAERS Safety Report 5056059-4 (Version None)
Quarter: 2006Q2

REPORT INFORMATION
  Report Type: 
  Country: None (occurrence: None)
  Receive Date: 20060616
  Receipt Date: 20060313
  Transmission Date: 20061013
  Serious: No
  Sender: FDA-Public Use
  Company Number: 2006US000227

PATIENT
  Sex: Female

DRUGS (1)
  1. VESICARE [Suspect]
     Route: 065
     Dates: start: 20051001, end: 20060101

REACTIONS (3)
  - CONSTIPATION [None]
  - VISION BLURRED [None]
  - WEIGHT INCREASED [None]
